FAERS Safety Report 8019661-3 (Version None)
Quarter: 2012Q1

REPORT INFORMATION
  Report Type: 
  Country: None (occurrence: None)
  Receive Date: 20120103
  Receipt Date: 20110623
  Transmission Date: 20120608
  Serious: Yes (Hospitalization)
  Sender: FDA-Public Use
  Company Number: US-GLAXOSMITHKLINE-A0934711A

PATIENT
  Age: 62 Year
  Sex: Female

DRUGS (3)
  1. AVANDARYL [Suspect]
     Indication: DIABETES MELLITUS
     Route: 048
     Dates: start: 20060501, end: 20061201
  2. AVANDAMET [Suspect]
     Indication: DIABETES MELLITUS
     Route: 048
     Dates: start: 20061201, end: 20071101
  3. AVANDIA [Suspect]
     Indication: PRODUCT USED FOR UNKNOWN INDICATION
     Route: 048

REACTIONS (3)
  - MYOCARDIAL ISCHAEMIA [None]
  - CEREBROVASCULAR ACCIDENT [None]
  - HEART INJURY [None]
